FAERS Safety Report 6069024-5 (Version None)
Quarter: 2009Q1

REPORT INFORMATION
  Report Type: 
  Country: None (occurrence: None)
  Receive Date: 20090206
  Receipt Date: 20090129
  Transmission Date: 20090719
  Serious: Yes (Other)
  Sender: FDA-Public Use
  Company Number: US-ELI_LILLY_AND_COMPANY-US200901005563

PATIENT
  Sex: Female

DRUGS (3)
  1. BYETTA [Suspect]
     Indication: DIABETES MELLITUS
     Dosage: UNK, UNKNOWN
     Dates: start: 20080101, end: 20080101
  2. LANTUS [Concomitant]
     Dosage: UNK, UNKNOWN
  3. SYMLIN [Concomitant]
     Dosage: UNK, UNKNOWN
     Dates: start: 20081201

REACTIONS (1)
  - SUICIDAL IDEATION [None]
